FAERS Safety Report 18823263 (Version 1)
Quarter: 2021Q1

REPORT INFORMATION
  Report Type: Spontaneous
  Country: CN (occurrence: CN)
  Receive Date: 20210201
  Receipt Date: 20210201
  Transmission Date: 20210419
  Serious: Yes (Other)
  Sender: FDA-Public Use
  Company Number: CN-BAXTER-2021BAX001831

PATIENT
  Age: 7 Year
  Sex: Male
  Weight: 29.5 kg

DRUGS (20)
  1. ENDOXAN [Suspect]
     Active Substance: CYCLOPHOSPHAMIDE
     Indication: ACUTE LYMPHOCYTIC LEUKAEMIA
     Dosage: CYCLOPHOSPHAMIDE 1.1 G + 0.9% SODIUM CHLORIDE 250 ML
     Route: 041
     Dates: start: 20210104, end: 20210104
  2. DEXAMETHASONE SODIUM PHOSPHATE. [Suspect]
     Active Substance: DEXAMETHASONE SODIUM PHOSPHATE
     Dosage: DEXAMETHASONE SODIUM PHOSPHATE + CYTARABINE + 0.9% SODIUM CHLORIDE (DOSE RE?INTRODUCED)
     Route: 037
     Dates: start: 202101
  3. GLUCOSE [Suspect]
     Active Substance: DEXTROSE
     Dosage: 5% GLUCOSE + CYTARABINE (DOSE RE?INTRODUCED)
     Route: 041
     Dates: start: 202101
  4. CYTOSAR [Suspect]
     Active Substance: CYTARABINE
     Indication: ACUTE LEUKAEMIA IN REMISSION
     Dosage: CYTARABINE 0.055 G + 5% GLUCOSE 150 ML
     Route: 041
     Dates: start: 20210104, end: 20210111
  5. GLUCOSE [Suspect]
     Active Substance: DEXTROSE
     Indication: MEDICATION DILUTION
     Dosage: 5% GLUCOSE 150 ML + CYTARABINE 0.055 G
     Route: 041
     Dates: start: 20210104, end: 20210111
  6. SODIUM CHLORIDE. [Suspect]
     Active Substance: SODIUM CHLORIDE
     Dosage: 0.9% SODIUM CHLORIDE + CYCLOPHOSPHAMIDE (DOSE RE?INTRODUCED)
     Route: 041
     Dates: start: 202101
  7. 0.9% SODIUM CHLORIDE INJECTION [Suspect]
     Active Substance: SODIUM CHLORIDE
     Dosage: 0.9% SODIUM CHLORIDE + CYTOSAR + DEXAMETHASONE SODIUM PHOSPHATE (DOSE RE?INTRODUCED)
     Route: 037
     Dates: start: 202101
  8. SODIUM CHLORIDE. [Suspect]
     Active Substance: SODIUM CHLORIDE
     Indication: MEDICATION DILUTION
     Dosage: 0.9% SODIUM CHLORIDE 250 ML + CYCLOPHOSPHAMIDE 1.1 G
     Route: 041
     Dates: start: 20210104, end: 20210104
  9. 0.9% SODIUM CHLORIDE INJECTION [Suspect]
     Active Substance: SODIUM CHLORIDE
     Indication: MEDICATION DILUTION
     Dosage: 0.9% SODIUM CHLORIDE + CYTOSAR 0.035 G + DEXAMETHASONE SODIUM PHOSPHATE 2.5 MG
     Route: 037
     Dates: start: 20210104, end: 20210104
  10. 0.9% SODIUM CHLORIDE INJECTION [Suspect]
     Active Substance: SODIUM CHLORIDE
     Dosage: 0.9% SODIUM CHLORIDE 3 ML + METHOTREXATE 12.5 MG + DEXAMETHASONE SODIUM PHOSPHATE 2.5 MG
     Route: 037
     Dates: start: 20210104, end: 20210104
  11. CYTOSAR [Suspect]
     Active Substance: CYTARABINE
     Dosage: CYTARABINE + DEXAMETHASONE SODIUM PHOSPHATE + 0.9% SODIUM CHLORIDE (DOSE RE?INTRODUCED)
     Route: 037
     Dates: start: 202101
  12. CYTOSAR [Suspect]
     Active Substance: CYTARABINE
     Dosage: CYTARABINE + 5% GLUCOSE (DOSE RE?INTRODUCED)
     Route: 041
     Dates: start: 202101
  13. DEXAMETHASONE SODIUM PHOSPHATE. [Suspect]
     Active Substance: DEXAMETHASONE SODIUM PHOSPHATE
     Dosage: DEXAMETHASONE SODIUM PHOSPHATE + METHOTREXATE + 0.9% SODIUM CHLORIDE (DOSE RE?INTRODUCED)
     Route: 037
     Dates: start: 202101
  14. METHOTREXATE. [Suspect]
     Active Substance: METHOTREXATE
     Indication: ACUTE LYMPHOCYTIC LEUKAEMIA
     Dosage: METHOTREXATE 12.5 MG + DEXAMETHASONE SODIUM PHOSPHATE 2.5 MG + 0.9% SODIUM CHLORIDE 3 ML
     Route: 037
     Dates: start: 20210104, end: 20210104
  15. ENDOXAN [Suspect]
     Active Substance: CYCLOPHOSPHAMIDE
     Indication: ACUTE LEUKAEMIA IN REMISSION
     Dosage: CYCLOPHOSPHAMIDE + 0.9% SODIUM CHLORIDE (DOSE RE?INTRODUCED)
     Route: 041
     Dates: start: 202101
  16. METHOTREXATE. [Suspect]
     Active Substance: METHOTREXATE
     Indication: ACUTE LEUKAEMIA IN REMISSION
     Dosage: METHOTREXATE + DEXAMETHASONE SODIUM PHOSPHATE + 0.9% SODIUM CHLORIDE (DOSE RE?INTRODUCED)
     Route: 037
     Dates: start: 202101
  17. 0.9% SODIUM CHLORIDE INJECTION [Suspect]
     Active Substance: SODIUM CHLORIDE
     Dosage: 0.9% SODIUM CHLORIDE + METHOTREXATE + DEXAMETHASONE SODIUM PHOSPHATE (DOSE RE?INTRODUCED)
     Route: 037
     Dates: start: 202101
  18. CYTOSAR [Suspect]
     Active Substance: CYTARABINE
     Indication: ACUTE LYMPHOCYTIC LEUKAEMIA
     Dosage: CYTARABINE 0.035 G + DEXAMETHASONE SODIUM PHOSPHATE 2.5 MG + 0.9% SODIUM CHLORIDE
     Route: 037
     Dates: start: 20210104, end: 20210104
  19. DEXAMETHASONE SODIUM PHOSPHATE. [Suspect]
     Active Substance: DEXAMETHASONE SODIUM PHOSPHATE
     Indication: ACUTE LYMPHOCYTIC LEUKAEMIA
     Dosage: DEXAMETHASONE SODIUM PHOSPHATE 2.5 MG + CYTARABINE 0.035 G + 0.9% SODIUM CHLORIDE
     Route: 037
     Dates: start: 20210104, end: 20210104
  20. DEXAMETHASONE SODIUM PHOSPHATE. [Suspect]
     Active Substance: DEXAMETHASONE SODIUM PHOSPHATE
     Indication: ACUTE LEUKAEMIA IN REMISSION
     Dosage: DEXAMETHASONE SODIUM PHOSPHATE 2.5 MG + METHOTREXATE 12.5 MG + 0.9% SODIUM CHLORIDE 3 ML
     Route: 037
     Dates: start: 20210104, end: 20210104

REACTIONS (3)
  - Mental disorder [Unknown]
  - Palpitations [Unknown]
  - Myelosuppression [Recovering/Resolving]

NARRATIVE: CASE EVENT DATE: 20210114
